FAERS Safety Report 21986066 (Version 1)
Quarter: 2023Q1

REPORT INFORMATION
  Report Type: Spontaneous
  Country: US (occurrence: US)
  Receive Date: 20230213
  Receipt Date: 20230213
  Transmission Date: 20230418
  Serious: No
  Sender: FDA-Public Use
  Company Number: US-JNJFOC-20230144614

PATIENT
  Age: 62 Year
  Sex: Male
  Weight: 106 kg

DRUGS (4)
  1. IMODIUM [Suspect]
     Active Substance: LOPERAMIDE HYDROCHLORIDE
     Indication: Diarrhoea
     Route: 065
  2. TREPROSTINIL [Concomitant]
     Active Substance: TREPROSTINIL
     Indication: Pulmonary arterial hypertension
     Dosage: 48 UG
     Route: 055
     Dates: start: 2022
  3. TYVASO [Concomitant]
     Active Substance: TREPROSTINIL
     Indication: Pulmonary arterial hypertension
     Route: 055
  4. OFEV [Concomitant]
     Active Substance: NINTEDANIB
     Indication: Product used for unknown indication
     Route: 065

REACTIONS (1)
  - Constipation [Recovering/Resolving]
